FAERS Safety Report 17454766 (Version 2)
Quarter: 2020Q2

REPORT INFORMATION
  Report Type: Spontaneous
  Country: None (occurrence: US)
  Receive Date: 20200225
  Receipt Date: 20200515
  Transmission Date: 20200713
  Serious: No
  Sender: FDA-Public Use
  Company Number: US-BRISTOL-MYERS SQUIBB COMPANY-BMS-2020-015991

PATIENT
  Sex: Female

DRUGS (1)
  1. ORENCIA [Suspect]
     Active Substance: ABATACEPT
     Indication: PRODUCT USED FOR UNKNOWN INDICATION
     Dosage: 125MG (1 SYRINGE), QWK
     Route: 058

REACTIONS (2)
  - Nasopharyngitis [Unknown]
  - Product dose omission [Unknown]
